FAERS Safety Report 16419912 (Version 3)
Quarter: 2019Q3

REPORT INFORMATION
  Report Type: Spontaneous
  Country: US (occurrence: US)
  Receive Date: 20190612
  Receipt Date: 20190820
  Transmission Date: 20191004
  Serious: No
  Sender: FDA-Public Use
  Company Number: US-VERTEX PHARMACEUTICALS-2019-005183

PATIENT
  Sex: Male
  Weight: 19 kg

DRUGS (12)
  1. FLONASE ALLERGY RELIEF [Concomitant]
     Active Substance: FLUTICASONE PROPIONATE
     Indication: HYPERSENSITIVITY
     Dosage: 1 SPRAY IN EACH NOSTRIL DAILY
     Route: 045
  2. ORKAMBI [Suspect]
     Active Substance: IVACAFTOR\LUMACAFTOR
     Indication: CYSTIC FIBROSIS
     Dosage: 150/188 MG GRANULES, BID
     Route: 048
     Dates: start: 20190206, end: 201903
  3. PERTZYE [Concomitant]
     Active Substance: PANCRELIPASE AMYLASE\PANCRELIPASE LIPASE\PANCRELIPASE PROTEASE
     Dosage: 2 DOSAGE FORMS BEFORE MEALS AND 1 BEFORE SNACKS
     Route: 048
  4. SALT [Concomitant]
     Active Substance: SODIUM CHLORIDE
  5. PROAIR HFA [Concomitant]
     Active Substance: ALBUTEROL SULFATE
     Indication: WHEEZING
  6. CLARITIN [CLARITHROMYCIN] [Concomitant]
     Active Substance: CLARITHROMYCIN
     Indication: HYPERSENSITIVITY
     Dosage: 5 MILLILITER, QD
     Route: 048
  7. PROAIR HFA [Concomitant]
     Active Substance: ALBUTEROL SULFATE
     Indication: COUGH
     Dosage: 2-4 PUFFS EVERY 4-6 HOURS
     Route: 055
  8. VITAMIN D3 [Concomitant]
     Active Substance: CHOLECALCIFEROL
     Dosage: 2000 IU INTERNATIONAL UNIT(S), QD
     Route: 048
  9. RANITIDINE HCL [Concomitant]
     Active Substance: RANITIDINE HYDROCHLORIDE
     Dosage: 5 MILLILITER, QD, PRN
     Route: 048
  10. IBUPROFEN. [Concomitant]
     Active Substance: IBUPROFEN
     Indication: MIGRAINE
     Dosage: 5 MILLILITER, TID, PRN
     Route: 048
  11. PANCRELIPASE. [Concomitant]
     Active Substance: PANCRELIPASE
  12. PULMOZYME [Concomitant]
     Active Substance: DORNASE ALFA
     Dosage: 2.5 MG, DAILY
     Route: 055

REACTIONS (6)
  - Blood pressure increased [Unknown]
  - Chest discomfort [Unknown]
  - Headache [Unknown]
  - Dyspnoea [Unknown]
  - Weight gain poor [Not Recovered/Not Resolved]
  - Flushing [Unknown]

NARRATIVE: CASE EVENT DATE: 2019
